FAERS Safety Report 19642619 (Version 1)
Quarter: 2021Q3

REPORT INFORMATION
  Report Type: Spontaneous
  Country: CN (occurrence: CN)
  Receive Date: 20210730
  Receipt Date: 20210730
  Transmission Date: 20211014
  Serious: Yes (Other)
  Sender: FDA-Public Use
  Company Number: CN-PFIZER INC-202100918452

PATIENT
  Age: 21 Year
  Sex: Male
  Weight: 78 kg

DRUGS (1)
  1. SOLU?MEDROL [Suspect]
     Active Substance: METHYLPREDNISOLONE SODIUM SUCCINATE
     Indication: VERTIGO POSITIONAL
     Dosage: 40 MG, 1X/DAY
     Route: 041
     Dates: start: 20210703, end: 20210703

REACTIONS (3)
  - Cyanosis [Recovering/Resolving]
  - Off label use [Unknown]
  - Chest discomfort [Recovering/Resolving]

NARRATIVE: CASE EVENT DATE: 20210703
